FAERS Safety Report 10029287 (Version 2)
Quarter: 2014Q1

REPORT INFORMATION
  Report Type: Spontaneous
  Country: DE (occurrence: DE)
  Receive Date: 20140321
  Receipt Date: 20140328
  Transmission Date: 20141002
  Serious: Yes (Hospitalization)
  Sender: FDA-Public Use
  Company Number: PHHY2014DE032603

PATIENT
  Sex: Male

DRUGS (3)
  1. ILARIS [Suspect]
     Indication: CRYOPYRIN ASSOCIATED PERIODIC SYNDROME
     Dosage: 150 MG, EVERY 8 WEEKS
     Route: 058
  2. ILARIS [Suspect]
     Dosage: 150 MG, EVERY 4 WEEKS
     Route: 058
  3. CORTISONE [Concomitant]

REACTIONS (2)
  - Hyperpyrexia [Recovered/Resolved]
  - Leukopenia [Recovered/Resolved]
